FAERS Safety Report 8183118-X (Version None)
Quarter: 2012Q1

REPORT INFORMATION
  Report Type: 
  Country: None (occurrence: None)
  Receive Date: 20120305
  Receipt Date: 20120229
  Transmission Date: 20120608
  Serious: Yes (Hospitalization)
  Sender: FDA-Public Use
  Company Number: PL-AMGEN-POLSP2011068352

PATIENT
  Age: 32 Year
  Sex: Male
  Weight: 82 kg

DRUGS (11)
  1. VENOFER [Concomitant]
  2. CALPEROS                           /00751519/ [Concomitant]
     Dosage: 1 G, UNK
     Dates: start: 20110114
  3. CINACALCET HYDROCHLORIDE [Suspect]
     Indication: HYPERPARATHYROIDISM SECONDARY
     Dosage: 30 MG, QWK
     Route: 048
     Dates: start: 20110926, end: 20111215
  4. ACIDUM FOLICUM [Concomitant]
     Dosage: 15 MG, UNK
     Dates: start: 20110114
  5. ENOXAPARIN SODIUM [Concomitant]
     Dosage: 0.04 G, UNK
     Route: 058
     Dates: start: 20110114
  6. VIVACOR                            /00802602/ [Concomitant]
     Dosage: 0.006 G, UNK
     Dates: start: 20111214
  7. BIOPRAZOL [Concomitant]
     Dosage: 0.02 G, UNK
     Dates: start: 20110114
  8. INSPRA                             /01362602/ [Concomitant]
     Dosage: 0.025 G, UNK
     Dates: start: 20111214
  9. ARANESP [Concomitant]
     Indication: RENAL FAILURE CHRONIC
  10. VITAMIN B COMPLEX CAP [Concomitant]
     Dosage: UNK
     Dates: start: 20110114
  11. ENCORTON                           /00044701/ [Concomitant]
     Dosage: 0.01 G, UNK
     Dates: start: 20110114

REACTIONS (7)
  - RESPIRATORY TRACT INFECTION [None]
  - CONGESTIVE CARDIOMYOPATHY [None]
  - PULMONARY CONGESTION [None]
  - CIRCULATORY COLLAPSE [None]
  - CARDIAC FAILURE [None]
  - PYREXIA [None]
  - OROPHARYNGEAL PAIN [None]
